FAERS Safety Report 7585683-X (Version None)
Quarter: 2011Q2

REPORT INFORMATION
  Report Type: 
  Country: None (occurrence: None)
  Receive Date: 20110624
  Receipt Date: 20110613
  Transmission Date: 20111010
  Serious: Yes (Other)
  Sender: FDA-Public Use
  Company Number: MX-1186694

PATIENT
  Age: 78 Year
  Sex: Female
  Weight: 64 kg

DRUGS (5)
  1. BIMATOPROST [Concomitant]
  2. BSS [Suspect]
     Dosage: INTRAOCULAR
     Route: 031
     Dates: start: 20110512, end: 20110512
  3. XALATAN [Concomitant]
  4. METFORMIN HCL [Concomitant]
  5. COSOPT [Concomitant]

REACTIONS (1)
  - ENDOPHTHALMITIS [None]
